FAERS Safety Report 4831251-X (Version None)
Quarter: 2005Q4

REPORT INFORMATION
  Report Type: 
  Country: None (occurrence: None)
  Receive Date: 20051116
  Receipt Date: 20051108
  Transmission Date: 20060501
  Serious: Yes (Other)
  Sender: FDA-Public Use
  Company Number: 163-20785-05090095

PATIENT
  Age: 48 Year
  Sex: Female
  Weight: 52.6173 kg

DRUGS (8)
  1. THALOMID [Suspect]
     Indication: MULTIPLE MYELOMA
     Dosage: 50 MG DAILY ORAL
     Route: 048
     Dates: start: 20050613, end: 20050701
  2. CELLCEPT (MYCOPHENOATE MOFETIL) [Concomitant]
  3. CYCLOSPORINE [Concomitant]
  4. PROTONIX [Concomitant]
  5. COUMADIN [Concomitant]
  6. DIFLUCAN (FLUCONAZOLE) [Concomitant]
  7. ACYCLOVIR [Concomitant]
  8. BACTRIM [Concomitant]

REACTIONS (8)
  - COUGH [None]
  - DYSPNOEA [None]
  - INSOMNIA [None]
  - LARYNGOSPASM [None]
  - MEMORY IMPAIRMENT [None]
  - NERVOUSNESS [None]
  - PSYCHOMOTOR HYPERACTIVITY [None]
  - SWOLLEN TONGUE [None]
